FAERS Safety Report 6251472-1 (Version None)
Quarter: 2009Q2

REPORT INFORMATION
  Report Type: 
  Country: None (occurrence: None)
  Receive Date: 20090630
  Receipt Date: 20090626
  Transmission Date: 20091009
  Serious: Yes (Other)
  Sender: FDA-Public Use
  Company Number: GB-BRISTOL-MYERS SQUIBB COMPANY-14663611

PATIENT
  Age: 56 Year
  Sex: Male

DRUGS (7)
  1. PRAVASTATIN SODIUM [Suspect]
     Route: 048
     Dates: start: 20080201, end: 20080305
  2. VIAGRA [Interacting]
     Indication: ERECTILE DYSFUNCTION
     Route: 048
     Dates: start: 20010307
  3. SIMVASTATIN [Interacting]
     Dosage: ALSO TAKEN AS CONMED AT A DOSE OF 75 MG ONCE DAILY FROM 18-JAN-2009.
     Route: 048
     Dates: start: 20071207, end: 20080201
  4. EZETIMIBE [Interacting]
     Route: 048
     Dates: start: 20080305, end: 20090107
  5. TROSPIUM CHLORIDE [Concomitant]
     Indication: UROGENITAL DISORDER
     Route: 065
     Dates: start: 20010307
  6. TROSPIUM CHLORIDE [Concomitant]
     Indication: URINARY TRACT DISORDER
     Route: 065
     Dates: start: 20010307
  7. ASPIRIN [Concomitant]
     Indication: CARDIOVASCULAR EVENT PROPHYLAXIS
     Dates: start: 20080118

REACTIONS (4)
  - BLOOD PRESSURE ABNORMAL [None]
  - DRUG INEFFECTIVE [None]
  - DRUG INTERACTION [None]
  - ERECTILE DYSFUNCTION [None]
